FAERS Safety Report 9288897 (Version 2)
Quarter: 2013Q3

REPORT INFORMATION
  Report Type: Report from Study
  Country: DE (occurrence: DE)
  Receive Date: 20130514
  Receipt Date: 20130826
  Transmission Date: 20140515
  Serious: Yes (Hospitalization, Other)
  Sender: FDA-Public Use
  Company Number: PHHY2013DE030081

PATIENT
  Sex: Female

DRUGS (12)
  1. FTY 720 [Suspect]
     Indication: MULTIPLE SCLEROSIS
     Dosage: 0.5 MG, QD
     Route: 048
     Dates: start: 20111110, end: 20130317
  2. FTY 720 [Suspect]
     Dosage: 0.5 MG, QD
     Route: 048
     Dates: start: 20130323
  3. GABAPENTIN [Concomitant]
     Dates: start: 20111006, end: 20111123
  4. GABAPENTIN [Concomitant]
     Dosage: 300 MG, QD
     Route: 048
     Dates: start: 20120601
  5. TRAMADOL [Concomitant]
     Dates: start: 20111006, end: 20120229
  6. TRAMADOL AXCOUNT [Concomitant]
     Dates: start: 20120213, end: 20120509
  7. BACLOFEN AL [Concomitant]
     Indication: MUSCLE SPASTICITY
     Dosage: 25 MG, 2X1/2
     Route: 048
     Dates: start: 20110523
  8. CITALOPRAM [Concomitant]
     Indication: DEPRESSION
     Dosage: 20 MG, QD
     Route: 048
     Dates: start: 20110523
  9. LORAZEPAM DURA [Concomitant]
     Indication: SLEEP DISORDER
     Dosage: 1 MG, PRN (HALF TO ONE)
     Route: 048
     Dates: start: 20110523
  10. AMITRIPTYLIN BETA [Concomitant]
     Indication: DEPRESSION
     Dosage: 25 MG, QD
     Route: 048
     Dates: start: 20110523
  11. NEUPRO [Concomitant]
     Indication: RESTLESS LEGS SYNDROME
     Dosage: 3 MG, QD
     Route: 048
     Dates: start: 20111123
  12. MAGNESIUM VERLA                    /00648601/ [Concomitant]
     Dosage: 1 DF, QD
     Dates: start: 20120711

REACTIONS (6)
  - Gastroenteritis rotavirus [Recovered/Resolved]
  - Vomiting [Unknown]
  - Diarrhoea [Unknown]
  - Alanine aminotransferase increased [Unknown]
  - C-reactive protein increased [Unknown]
  - Lymphocyte count decreased [Unknown]
